FAERS Safety Report 9361203 (Version 2)
Quarter: 2013Q3

REPORT INFORMATION
  Report Type: Spontaneous
  Country: DE (occurrence: DE)
  Receive Date: 20130621
  Receipt Date: 20130819
  Transmission Date: 20140515
  Serious: Yes (Death, Hospitalization, Other)
  Sender: FDA-Public Use
  Company Number: DE-BRISTOL-MYERS SQUIBB COMPANY-19004019

PATIENT
  Age: 87 Year
  Sex: Male
  Weight: 88 kg

DRUGS (7)
  1. ELIQUIS [Suspect]
     Indication: ATRIAL FIBRILLATION
     Route: 048
     Dates: start: 20130518
  2. ACETYLSALICYLIC ACID [Suspect]
     Route: 048
  3. DIGOXIN [Concomitant]
     Route: 048
  4. RAMIPRIL [Concomitant]
     Route: 048
  5. AMLODIPINE [Concomitant]
     Route: 048
  6. TORASEMIDE [Concomitant]
     Route: 048
  7. TAMSULOSIN [Concomitant]
     Route: 048

REACTIONS (2)
  - Cerebral haemorrhage [Fatal]
  - Blood pressure increased [Unknown]
